FAERS Safety Report 4986697-6 (Version None)
Quarter: 2006Q2

REPORT INFORMATION
  Report Type: 
  Country: None (occurrence: None)
  Receive Date: 20060428
  Receipt Date: 20050831
  Transmission Date: 20061013
  Serious: Yes (Hospitalization)
  Sender: FDA-Public Use
  Company Number: US-MERCK-0509USA00223

PATIENT
  Age: 58 Year
  Sex: Male
  Weight: 119 kg

DRUGS (7)
  1. VIOXX [Suspect]
     Indication: SPONDYLITIS
     Route: 048
     Dates: start: 20000601, end: 20041201
  2. VIOXX [Suspect]
     Indication: MONARTHRITIS
     Route: 048
     Dates: start: 20000601, end: 20041201
  3. WELLBUTRIN [Concomitant]
     Route: 065
  4. VERELAN [Concomitant]
     Route: 065
  5. ZOCOR [Concomitant]
     Route: 065
  6. MAXZIDE [Concomitant]
     Route: 065
  7. HYZAAR [Concomitant]
     Route: 065

REACTIONS (6)
  - GASTROOESOPHAGEAL REFLUX DISEASE [None]
  - HYPERCHOLESTEROLAEMIA [None]
  - HYPERTENSION [None]
  - MICROCYTOSIS [None]
  - MYOCARDIAL INFARCTION [None]
  - OESOPHAGEAL SPASM [None]
